FAERS Safety Report 6001623-9 (Version None)
Quarter: 2008Q4

REPORT INFORMATION
  Report Type: 
  Country: None (occurrence: None)
  Receive Date: 20081215
  Receipt Date: 20080519
  Transmission Date: 20090506
  Serious: No
  Sender: FDA-Public Use
  Company Number: US-AMGEN-KDL272391

PATIENT
  Sex: Female
  Weight: 102.6 kg

DRUGS (13)
  1. ENBREL [Suspect]
     Indication: RHEUMATOID ARTHRITIS
     Route: 058
     Dates: end: 20080417
  2. LIPITOR [Concomitant]
  3. REGLAN [Concomitant]
  4. COREG [Concomitant]
  5. TRICOR [Concomitant]
  6. SYNTHROID [Concomitant]
  7. FUROSEMIDE [Concomitant]
  8. ALDACTONE [Concomitant]
  9. HUMULIN 70/30 [Concomitant]
  10. METFORMIN HCL [Concomitant]
  11. IMDUR [Concomitant]
  12. DIOVAN [Concomitant]
  13. PLAVIX [Concomitant]

REACTIONS (1)
  - LEUKOPENIA [None]
